FAERS Safety Report 5821052-8 (Version None)
Quarter: 2008Q3

REPORT INFORMATION
  Report Type: 
  Country: None (occurrence: None)
  Receive Date: 20080721
  Receipt Date: 20080708
  Transmission Date: 20090109
  Serious: Yes (Death, Hospitalization)
  Sender: FDA-Public Use
  Company Number: 2008AL004052

PATIENT
  Age: 72 Year
  Sex: Female

DRUGS (2)
  1. DIGOXIN [Suspect]
     Indication: ARRHYTHMIA
     Dosage: 0.25MG, DAILY, PO
     Route: 048
     Dates: end: 20071201
  2. DIGOXIN [Suspect]
     Indication: ARRHYTHMIA
     Dosage: 0.125MG, QOD, PO
     Route: 048
     Dates: start: 20071201

REACTIONS (3)
  - DYSPNOEA [None]
  - RENAL FAILURE [None]
  - THERAPEUTIC AGENT TOXICITY [None]
